FAERS Safety Report 9329149 (Version 1)
Quarter: 2013Q2

REPORT INFORMATION
  Report Type: Spontaneous
  Country: US (occurrence: US)
  Receive Date: 20130604
  Receipt Date: 20130604
  Transmission Date: 20140414
  Serious: No
  Sender: FDA-Public Use
  Company Number: US-SANOFI-AVENTIS-2013SA023023

PATIENT
  Age: 55 Year
  Sex: Female

DRUGS (2)
  1. SOLOSTAR [Suspect]
     Indication: TYPE 2 DIABETES MELLITUS
  2. LANTUS SOLOSTAR [Suspect]
     Indication: TYPE 2 DIABETES MELLITUS
     Dosage: 60 AM/ 30 PM
     Route: 051

REACTIONS (5)
  - Injury associated with device [Unknown]
  - Puncture site haemorrhage [Unknown]
  - Arthritis [Unknown]
  - Pain in extremity [Unknown]
  - Nasopharyngitis [Unknown]
